FAERS Safety Report 9344216 (Version 1)
Quarter: 2013Q2

REPORT INFORMATION
  Report Type: Spontaneous
  Country: DE (occurrence: DE)
  Receive Date: 20130612
  Receipt Date: 20130612
  Transmission Date: 20140414
  Serious: Yes (Other)
  Sender: FDA-Public Use
  Company Number: DE-JNJFOC-20130607130

PATIENT
  Sex: Female
  Weight: 76 kg

DRUGS (3)
  1. XARELTO [Suspect]
     Indication: PULMONARY EMBOLISM
     Route: 048
  2. LISINOPRIL [Concomitant]
     Route: 065
  3. MEGESTAT [Concomitant]
     Route: 065

REACTIONS (1)
  - Metastases to lung [Unknown]
